FAERS Safety Report 16011546 (Version 1)
Quarter: 2019Q1

REPORT INFORMATION
  Report Type: Spontaneous
  Country: US (occurrence: US)
  Receive Date: 20190227
  Receipt Date: 20190227
  Transmission Date: 20190418
  Serious: No
  Sender: FDA-Public Use
  Company Number: US-PFIZER INC-2019077548

PATIENT
  Age: 76 Year
  Sex: Female
  Weight: 84.37 kg

DRUGS (1)
  1. ARTHROTEC [Suspect]
     Active Substance: DICLOFENAC SODIUM\MISOPROSTOL
     Indication: ARTHRITIS
     Dosage: 75 MG, 2X/DAY
     Route: 048

REACTIONS (2)
  - Weight increased [Unknown]
  - Drug hypersensitivity [Unknown]
